FAERS Safety Report 4277593-0 (Version None)
Quarter: 2004Q1

REPORT INFORMATION
  Report Type: 
  Country: None (occurrence: None)
  Receive Date: 20040122
  Receipt Date: 20031028
  Transmission Date: 20041129
  Serious: Yes (Death, Hospitalization, Disabling, Other)
  Sender: FDA-Public Use
  Company Number: WAES 0310GBR00306

PATIENT
  Age: 84 Year
  Sex: Male
  Weight: 68 kg

DRUGS (6)
  1. DIGOXIN [Concomitant]
     Indication: ATRIAL FIBRILLATION
     Dates: start: 20031001
  2. PROSCAR [Suspect]
     Indication: BENIGN PROSTATIC HYPERPLASIA
     Route: 048
     Dates: start: 20030501, end: 20031104
  3. PREDNISOLONE [Concomitant]
     Indication: RHEUMATOID ARTHRITIS
  4. ROFECOXIB [Concomitant]
     Route: 048
  5. ALENDRONATE SODIUM [Concomitant]
     Indication: PROPHYLAXIS
     Route: 048
     Dates: end: 20030501
  6. CALCIUM CARBONATE AND CHOLECALCIFEROL [Concomitant]
     Indication: PROPHYLAXIS

REACTIONS (2)
  - AGEUSIA [None]
  - DYSPNOEA [None]
